FAERS Safety Report 6203096-X (Version None)
Quarter: 2009Q2

REPORT INFORMATION
  Report Type: 
  Country: None (occurrence: None)
  Receive Date: 20090527
  Receipt Date: 20090521
  Transmission Date: 20091009
  Serious: No
  Sender: FDA-Public Use
  Company Number: US-JNJFOC-20090505731

PATIENT
  Sex: Female
  Weight: 70.31 kg

DRUGS (1)
  1. DURAGESIC-100 [Suspect]
     Indication: PAIN
     Dosage: 100UG/HR*4 PATCHES
     Route: 062

REACTIONS (3)
  - APPLICATION SITE IRRITATION [None]
  - INAPPROPRIATE SCHEDULE OF DRUG ADMINISTRATION [None]
  - TREATMENT NONCOMPLIANCE [None]
